APPROVED DRUG PRODUCT: METHOCARBAMOL
Active Ingredient: METHOCARBAMOL
Strength: 500MG
Dosage Form/Route: TABLET;ORAL
Application: A213967 | Product #002 | TE Code: AA
Applicant: AUROBINDO PHARMA LTD
Approved: Feb 9, 2023 | RLD: No | RS: No | Type: RX